FAERS Safety Report 10010288 (Version 1)
Quarter: 2014Q1

REPORT INFORMATION
  Report Type: Spontaneous
  Country: TR (occurrence: TR)
  Receive Date: 20140314
  Receipt Date: 20140314
  Transmission Date: 20141002
  Serious: Yes (Hospitalization, Other)
  Sender: FDA-Public Use
  Company Number: TR-PAR PHARMACEUTICAL, INC-2014SCPR008966

PATIENT
  Sex: 0

DRUGS (2)
  1. CABERGOLINE [Suspect]
     Indication: BLOOD PROLACTIN INCREASED
     Dosage: 0.5 MG, Q2W
     Route: 065
  2. CABERGOLINE [Suspect]
     Indication: PITUITARY TUMOUR BENIGN

REACTIONS (1)
  - Haemolytic anaemia [Recovered/Resolved]
